FAERS Safety Report 10648727 (Version 2)
Quarter: 2015Q2

REPORT INFORMATION
  Report Type: Spontaneous
  Country: US (occurrence: US)
  Receive Date: 20141212
  Receipt Date: 20150421
  Transmission Date: 20150821
  Serious: No
  Sender: FDA-Public Use
  Company Number: US-PFIZER INC-2014338744

PATIENT
  Age: 65 Year
  Sex: Female
  Weight: 83.9 kg

DRUGS (1)
  1. VENLAFAXINE HCL [Suspect]
     Active Substance: VENLAFAXINE HYDROCHLORIDE
     Dosage: 150 MG, 2X/DAY
     Dates: start: 2014

REACTIONS (3)
  - Headache [Unknown]
  - Tremor [Unknown]
  - Diarrhoea [Unknown]
